FAERS Safety Report 8243601-5 (Version None)
Quarter: 2012Q1

REPORT INFORMATION
  Report Type: 
  Country: None (occurrence: None)
  Receive Date: 20120329
  Receipt Date: 20120321
  Transmission Date: 20120608
  Serious: Yes (Hospitalization)
  Sender: FDA-Public Use
  Company Number: US-BAYER-2012-028641

PATIENT
  Age: 35 Year
  Sex: Female
  Weight: 81.8 kg

DRUGS (2)
  1. PRISTIQ [Concomitant]
     Indication: DEPRESSION
     Dosage: 50 MG, UNK
  2. YAZ [Suspect]

REACTIONS (1)
  - PULMONARY EMBOLISM [None]
